FAERS Safety Report 9251402 (Version 2)
Quarter: 2014Q2

REPORT INFORMATION
  Report Type: Spontaneous
  Country: IT (occurrence: IT)
  Receive Date: 20130424
  Receipt Date: 20140418
  Transmission Date: 20141212
  Serious: Yes (Other)
  Sender: FDA-Public Use
  Company Number: IT-PFIZER INC-2013127098

PATIENT
  Age: 79 Year
  Sex: Male

DRUGS (4)
  1. AMIODAR [Suspect]
     Indication: ARRHYTHMIA
     Dosage: 200 MG, TOTAL
     Route: 048
     Dates: start: 20130406, end: 20130406
  2. ALMARYTM [Suspect]
     Indication: CARDIOVERSION
     Dosage: 150 MG, TOTAL
     Route: 042
     Dates: start: 20130406, end: 20130406
  3. COUMADIN [Concomitant]
     Dosage: UNK
  4. KARVEA [Concomitant]
     Dosage: UNK

REACTIONS (3)
  - Presyncope [Recovered/Resolved]
  - Hypotension [Recovered/Resolved]
  - Bradycardia [Recovered/Resolved]
